FAERS Safety Report 15587913 (Version 4)
Quarter: 2024Q4

REPORT INFORMATION
  Report Type: Report from Study
  Country: US (occurrence: US)
  Receive Date: 20181105
  Receipt Date: 20241129
  Transmission Date: 20250114
  Serious: Yes (Hospitalization)
  Sender: ABBVIE
  Company Number: US-ABBVIE-18P-163-2478628-00

PATIENT
  Age: 17 Year
  Sex: Male

DRUGS (9)
  1. HUMIRA [Suspect]
     Active Substance: ADALIMUMAB
     Indication: Crohn^s disease
     Route: 058
     Dates: start: 20170321, end: 20180624
  2. MERCAPTOPURINE [Suspect]
     Active Substance: MERCAPTOPURINE
     Indication: Crohn^s disease
     Route: 048
     Dates: start: 20180131, end: 20180628
  3. ACETAMINOPHEN [Concomitant]
     Active Substance: ACETAMINOPHEN
     Indication: Pain
     Dosage: TIME INTERVAL: AS NECESSARY
     Route: 048
     Dates: start: 20170427
  4. CHOLECALCIFEROL [Concomitant]
     Active Substance: CHOLECALCIFEROL
     Indication: Vitamin supplementation
     Route: 048
     Dates: start: 20170228
  5. MIRALAX [Concomitant]
     Active Substance: POLYETHYLENE GLYCOL 3350
     Indication: Constipation
     Dosage: TIME INTERVAL: AS NECESSARY: 17 G BID PRN
     Route: 048
     Dates: start: 20170302
  6. PRENATAL PLUS IRON [Concomitant]
     Active Substance: .ALPHA.-TOCOPHEROL ACETATE, DL-\.BETA.-CAROTENE\ASCORBIC ACID\CALCIUM CARBONATE\CHOLECALCIFEROL\CUPR
     Indication: Mineral deficiency
     Route: 048
     Dates: start: 20170226
  7. TRIAMCINOLONE [Concomitant]
     Active Substance: TRIAMCINOLONE
     Indication: Excessive granulation tissue
     Dosage: TIME INTERVAL: AS NECESSARY: 1 APPLICATION TID PRN
     Route: 048
     Dates: start: 20170714
  8. OSMOLITE [Concomitant]
     Indication: Nutritional supplementation
     Dosage: 4 CANS DAILY VIA  GASTROSTOMY TUBE
     Route: 050
     Dates: start: 2018, end: 20180320
  9. OSMOLITE [Concomitant]
     Indication: Nutritional supplementation
     Dosage: 2 CANS DAILY VIA  GASTROSTOMY TUBE
     Route: 050
     Dates: start: 20180321

REACTIONS (1)
  - Malnutrition [Recovered/Resolved]

NARRATIVE: CASE EVENT DATE: 20180801
